FAERS Safety Report 15678351 (Version 1)
Quarter: 2018Q4

REPORT INFORMATION
  Report Type: Other
  Country: IT (occurrence: IT)
  Receive Date: 20181201
  Receipt Date: 20181201
  Transmission Date: 20190205
  Serious: Yes (Life-Threatening, Hospitalization, Other)
  Sender: FDA-Public Use
  Company Number: IT-MACLEODS PHARMACEUTICALS US LTD-MAC2018018897

PATIENT

DRUGS (10)
  1. LAROXYL [Concomitant]
     Active Substance: AMITRIPTYLINE HYDROCHLORIDE
     Indication: PRODUCT USED FOR UNKNOWN INDICATION
     Dosage: UNK
     Route: 065
  2. ARIPIPRAZOLE TABLET [Suspect]
     Active Substance: ARIPIPRAZOLE
     Indication: DRUG ABUSE
     Dosage: 28 DOSAGE FORM, QD
     Route: 048
     Dates: start: 20150503, end: 20150503
  3. EN [Suspect]
     Active Substance: DELORAZEPAM
     Indication: DRUG ABUSE
     Dosage: 20 DOSAGE FORM, SINGLE,TOTAL
     Route: 048
     Dates: start: 20150503, end: 20150503
  4. GABAPENTIN. [Suspect]
     Active Substance: GABAPENTIN
     Indication: DRUG ABUSE
     Dosage: 50 DOSAGE FORM, QD
     Route: 048
     Dates: start: 20150503, end: 20150503
  5. SERTRALINE [Suspect]
     Active Substance: SERTRALINE HYDROCHLORIDE
     Indication: DRUG ABUSE
     Dosage: 30 DOSAGE FORM, QD
     Route: 048
     Dates: start: 20150503, end: 20150503
  6. SERTRALINE [Suspect]
     Active Substance: SERTRALINE HYDROCHLORIDE
     Dosage: 30 DOSAGE FORM, TABLET
     Route: 048
     Dates: start: 20150503, end: 20150503
  7. PROZAC [Suspect]
     Active Substance: FLUOXETINE HYDROCHLORIDE
     Indication: DRUG ABUSE
     Dosage: 15 DOSAGE FORM, SINGLE, TOTAL, TABLET
     Route: 048
     Dates: start: 20150503, end: 20150503
  8. GABAPENTIN. [Suspect]
     Active Substance: GABAPENTIN
     Dosage: 50 DOSAGE FORM, QD, CAPSULE
     Route: 048
     Dates: start: 20150503, end: 20150503
  9. DEPAKIN [Suspect]
     Active Substance: VALPROATE SODIUM
     Indication: DRUG ABUSE
     Dosage: 26 DOSAGE FORM, TOTAL
     Route: 048
     Dates: start: 20150503, end: 20150503
  10. FLUOXETINE [Suspect]
     Active Substance: FLUOXETINE HYDROCHLORIDE
     Indication: DRUG ABUSE
     Dosage: 15 DOSAGE FORM, (15 UNIT)
     Route: 048
     Dates: start: 20150503

REACTIONS (4)
  - Drug abuse [Recovering/Resolving]
  - Intentional self-injury [Unknown]
  - Coma [Recovered/Resolved]
  - Intentional overdose [Unknown]

NARRATIVE: CASE EVENT DATE: 20150503
